FAERS Safety Report 19367285 (Version 1)
Quarter: 2021Q2

REPORT INFORMATION
  Report Type: Spontaneous
  Country: TW (occurrence: TW)
  Receive Date: 20210602
  Receipt Date: 20210602
  Transmission Date: 20210717
  Serious: Yes (Other)
  Sender: FDA-Public Use
  Company Number: TW-TAKEDA-2021TJP025725

PATIENT
  Age: 74 Year
  Sex: Male

DRUGS (4)
  1. NEXIUM [Concomitant]
     Active Substance: ESOMEPRAZOLE MAGNESIUM
     Indication: HELICOBACTER INFECTION
     Dosage: UNK
     Route: 048
  2. METHYCOBAL [Concomitant]
     Active Substance: METHYLCOBALAMIN
     Dosage: UNK
  3. DEXILANT [Suspect]
     Active Substance: DEXLANSOPRAZOLE
     Indication: LYMPHOMA
     Dosage: 60 MILLIGRAM
     Route: 048
     Dates: start: 20210518
  4. ALINAMIN?F50 (FURSULTIAMINE) [Suspect]
     Active Substance: FURSULTIAMINE
     Indication: HYPOAESTHESIA
     Dosage: UNK UNK, QD
     Route: 048

REACTIONS (1)
  - Gastric ulcer [Unknown]
